FAERS Safety Report 5607477-4 (Version None)
Quarter: 2008Q1

REPORT INFORMATION
  Report Type: 
  Country: None (occurrence: None)
  Receive Date: 20080125
  Receipt Date: 20080110
  Transmission Date: 20080703
  Serious: Yes (Hospitalization)
  Sender: FDA-Public Use
  Company Number: 8028977

PATIENT
  Age: 37 Year
  Sex: Female
  Weight: 86.2 kg

DRUGS (18)
  1. KEPPRA [Suspect]
     Indication: CONVULSION
     Dosage: 1750 MG 2/D PO
     Route: 048
     Dates: start: 20070101
  2. TRILEPTAL [Concomitant]
  3. LYRICA [Concomitant]
  4. TOPAMAX [Concomitant]
  5. DOCUSATE SODIUM [Concomitant]
  6. OGESTREL-28 [Concomitant]
  7. ACTONEL [Concomitant]
  8. TINACTIN [Concomitant]
  9. CLORAZEPATE [Concomitant]
  10. OYST-CAL-D [Concomitant]
  11. PSEUDOEPHEDRINE HCL [Concomitant]
  12. PEPTO-BISMOL [Concomitant]
  13. ACETAMINOPHEN [Concomitant]
  14. HYDROCORTISONE CREAM [Concomitant]
  15. ROBITUSSIN DM [Concomitant]
  16. KAOPECTATE [Concomitant]
  17. DIPHENHYDRAMINE HCL [Concomitant]
  18. BACITRACIN TOPICAL OINTMENT [Concomitant]

REACTIONS (3)
  - PANCREATITIS [None]
  - RASH [None]
  - SWELLING [None]
